FAERS Safety Report 9761206 (Version 1)
Quarter: 2013Q4

REPORT INFORMATION
  Report Type: Spontaneous
  Country: US (occurrence: US)
  Receive Date: 20131216
  Receipt Date: 20131216
  Transmission Date: 20140711
  Serious: Yes (Other)
  Sender: FDA-Public Use
  Company Number: US-PFIZER INC-2013357751

PATIENT
  Age: 43 Year
  Sex: Female
  Weight: 117.91 kg

DRUGS (2)
  1. EFFEXOR [Suspect]
     Indication: DEPRESSION
     Dosage: 150 MG, 1X/DAY
     Route: 048
     Dates: end: 1996
  2. DYAZIDE [Concomitant]
     Dosage: UNK

REACTIONS (1)
  - Diabetic ulcer [Unknown]
